FAERS Safety Report 8354411 (Version 2)
Quarter: 2012Q4

REPORT INFORMATION
  Report Type: 
  Country: JP (occurrence: JP)
  Receive Date: 20120125
  Receipt Date: 20120906
  Transmission Date: 20130627
  Serious: No
  Sender: FDA-Public Use
  Company Number: JP-PFIZER INC-2010086666

PATIENT
  Age: 47 Year
  Sex: Female

DRUGS (2)
  1. RIFABUTIN [Suspect]
     Indication: MYCOBACTERIUM AVIUM COMPLEX INFECTION
     Dosage: 300 mg, 1x/day
     Route: 048
     Dates: start: 20100630, end: 20100712
  2. RIFABUTIN [Suspect]
     Dosage: 150 mg, 1x/day
     Route: 048
     Dates: start: 20100728, end: 20100807

REACTIONS (1)
  - White blood cell count decreased [Recovered/Resolved]
